FAERS Safety Report 16962257 (Version 4)
Quarter: 2019Q4

REPORT INFORMATION
  Report Type: Report from Study
  Country: US (occurrence: US)
  Receive Date: 20191025
  Receipt Date: 20191118
  Transmission Date: 20200122
  Serious: Yes (Hospitalization)
  Sender: FDA-Public Use
  Company Number: US-ALNYLAM PHARMACEUTICALS, INC.-ALN-2019-000799

PATIENT

DRUGS (50)
  1. EPIGALLOCATECHIN GALLATE [Concomitant]
     Active Substance: EPIGALLOCATECHIN GALLATE
     Indication: AMYLOIDOSIS
     Dosage: 800 MILLIGRAM, QD
     Route: 048
     Dates: start: 20130918
  2. GADAVIST [Concomitant]
     Active Substance: GADOBUTROL
     Indication: IMAGING PROCEDURE
     Dosage: 7.5 MILLILITER, SINGLE
     Route: 042
     Dates: start: 20190927, end: 20190927
  3. GADAVIST [Concomitant]
     Active Substance: GADOBUTROL
     Dosage: 7 MILLILITER, SINGLE
     Route: 042
     Dates: start: 20191024, end: 20191024
  4. PROTONIX [Concomitant]
     Active Substance: PANTOPRAZOLE SODIUM
     Indication: VOMITING
     Dosage: 40 MILLIGRAM, BID
     Route: 048
     Dates: start: 20191011, end: 20191011
  5. LISINOPRIL. [Concomitant]
     Active Substance: LISINOPRIL
     Indication: HYPERTENSION
     Dosage: 10 MILLIGRAM, QD
     Route: 048
     Dates: start: 20190224, end: 20190928
  6. SILDENAFIL. [Concomitant]
     Active Substance: SILDENAFIL
     Indication: ERECTILE DYSFUNCTION
     Dosage: 25 MILLIGRAM, PRN
     Route: 048
     Dates: start: 20150714
  7. ACETAMINOPHENE [Concomitant]
     Active Substance: ACETAMINOPHEN
     Indication: PAIN
     Dosage: 650 MILLIGRAM, PRN
     Route: 048
     Dates: start: 20190927, end: 20190928
  8. BINIMETINIB [Concomitant]
     Active Substance: BINIMETINIB
     Indication: MALIGNANT MELANOMA STAGE III
     Dosage: 45 MILLIGRAM, BID
     Route: 048
     Dates: start: 20190117
  9. GADAVIST [Concomitant]
     Active Substance: GADOBUTROL
     Dosage: 7 MILLILITER, SINGLE
     Route: 042
     Dates: start: 20191025, end: 20191025
  10. SODIUM CHLORIDE. [Concomitant]
     Active Substance: SODIUM CHLORIDE
     Dosage: 2000 MILLILITER, SINGLE
     Route: 042
     Dates: start: 20190926, end: 20190926
  11. ALN-TTR02 [Suspect]
     Active Substance: PATISIRAN SODIUM
     Indication: HEREDITARY NEUROPATHIC AMYLOIDOSIS
     Dosage: 0.3 MILLIGRAM/KILOGRAM, Q3W
     Route: 042
     Dates: start: 20160523
  12. PARACETAMOL [Concomitant]
     Active Substance: ACETAMINOPHEN
     Indication: PROPHYLAXIS
     Dosage: 650 MILLIGRAM, Q3W
     Route: 048
     Dates: start: 20160523, end: 20161129
  13. PROSCAR [Concomitant]
     Active Substance: FINASTERIDE
     Indication: URINARY RETENTION
  14. FLOMAX [Concomitant]
     Active Substance: TAMSULOSIN HYDROCHLORIDE
     Indication: BENIGN PROSTATIC HYPERPLASIA
     Dosage: 0.4 MILLIGRAM, QD
     Route: 048
     Dates: start: 20190927
  15. LACTATED RINGERS SOLUTION [Concomitant]
     Active Substance: CALCIUM CHLORIDE\POTASSIUM CHLORIDE\SODIUM CHLORIDE\SODIUM LACTATE
     Indication: ANAESTHESIA
     Dosage: UNK
     Route: 042
     Dates: start: 20190927, end: 20190927
  16. NEXIUM [Concomitant]
     Active Substance: ESOMEPRAZOLE MAGNESIUM
     Indication: NAUSEA
     Dosage: 40 MILLIGRAM, BID
     Route: 048
     Dates: start: 20190928
  17. ZOFRAN [Concomitant]
     Active Substance: ONDANSETRON HYDROCHLORIDE
     Indication: NAUSEA
     Dosage: 4 MILLIGRAM, PRN
     Route: 042
     Dates: start: 20190927, end: 20190928
  18. DEXAMETHASONE. [Concomitant]
     Active Substance: DEXAMETHASONE
     Dosage: 7.5 MILLIGRAM, Q3W
     Route: 042
     Dates: start: 20190410, end: 20190523
  19. DEXAMETHASONE. [Concomitant]
     Active Substance: DEXAMETHASONE
     Dosage: 4 MILLIGRAM, TID
     Route: 048
     Dates: start: 20191018
  20. ENCORAFENIB [Concomitant]
     Active Substance: ENCORAFENIB
     Indication: MALIGNANT MELANOMA STAGE III
     Dosage: 225 MILLIGRAM, BID
     Route: 048
     Dates: start: 20190117
  21. NORVASC [Concomitant]
     Active Substance: AMLODIPINE BESYLATE
     Indication: HYPERTENSION
     Dosage: 5 MILLIGRAM, QD
     Route: 048
     Dates: start: 20190928
  22. ISOVUE 300 [Concomitant]
     Active Substance: IOPAMIDOL
     Indication: IMAGING PROCEDURE
     Dosage: 100 MILLILITER, SINGLE
     Route: 042
     Dates: start: 20190926, end: 20190928
  23. MORPHINE [Concomitant]
     Active Substance: MORPHINE
     Indication: PAIN
     Dosage: 2 MILLIGRAM, PRN
     Route: 042
     Dates: start: 20190927, end: 20190928
  24. SODIUM CHLORIDE. [Concomitant]
     Active Substance: SODIUM CHLORIDE
     Dosage: 50 MILLILITER PER HOUR
     Route: 042
     Dates: start: 20190926, end: 20190927
  25. SODIUM CHLORIDE. [Concomitant]
     Active Substance: SODIUM CHLORIDE
     Dosage: 3 MILLILITER, TID
     Route: 042
     Dates: start: 20191023, end: 20191025
  26. PARACETAMOL [Concomitant]
     Active Substance: ACETAMINOPHEN
     Dosage: 500 MILLIGRAM, Q3W
     Route: 048
     Dates: start: 20161221
  27. ASPIRIN BUFFERED [Concomitant]
     Active Substance: ASPIRIN
     Dosage: 325 MILLIGRAM, QD
     Route: 048
     Dates: start: 20191011
  28. FLOMAX [Concomitant]
     Active Substance: TAMSULOSIN HYDROCHLORIDE
     Indication: URINARY RETENTION
  29. GADAVIST [Concomitant]
     Active Substance: GADOBUTROL
     Dosage: 7 MILLILITER, SINGLE
     Route: 042
     Dates: start: 20190926, end: 20190926
  30. PROTONIX [Concomitant]
     Active Substance: PANTOPRAZOLE SODIUM
     Indication: NAUSEA
     Dosage: 40 MILLIGRAM, BID
     Route: 042
     Dates: start: 20190926, end: 20190928
  31. DEXAMETHASONE. [Concomitant]
     Active Substance: DEXAMETHASONE
     Indication: PROPHYLAXIS
     Dosage: 10 MILLIGRAM, Q3W
     Route: 042
     Dates: start: 20160523, end: 20190320
  32. DIPHENHYDRAMINE. [Concomitant]
     Active Substance: DIPHENHYDRAMINE
     Indication: PROPHYLAXIS
     Dosage: 50 MILLIGRAM, Q3W
     Route: 042
     Dates: start: 20160523
  33. LOMOTIL [Concomitant]
     Active Substance: ATROPINE SULFATE\DIPHENOXYLATE HYDROCHLORIDE
     Indication: DIARRHOEA
     Dosage: 1-2 TBL, QD PRN
     Route: 048
     Dates: start: 20140609
  34. OMNIPAQUE [Concomitant]
     Active Substance: IOHEXOL
     Indication: IMAGING PROCEDURE
     Dosage: 240 MILLIGRAM, SINGLE
     Route: 042
     Dates: start: 20190926, end: 20190926
  35. SODIUM CHLORIDE. [Concomitant]
     Active Substance: SODIUM CHLORIDE
     Indication: DEHYDRATION
     Dosage: 35 MILLILITER PER HOUR
     Route: 042
     Dates: start: 20191011, end: 20191011
  36. ZOFRAN [Concomitant]
     Active Substance: ONDANSETRON HYDROCHLORIDE
     Indication: VOMITING
     Dosage: 4 MILLIGRAM, PRN
     Route: 048
     Dates: start: 20190927
  37. FAMOTIDINE. [Concomitant]
     Active Substance: FAMOTIDINE
     Indication: PROPHYLAXIS
     Dosage: 20 MILLIGRAM, Q3W
     Route: 042
     Dates: start: 20160523
  38. LISINOPRIL. [Concomitant]
     Active Substance: LISINOPRIL
     Dosage: 20 MILLIGRAM, QD
     Route: 048
     Dates: start: 20190929
  39. BINIMETINIB [Concomitant]
     Active Substance: BINIMETINIB
     Dosage: 15 MILLIGRAM, BID
     Route: 048
  40. PROTONIX [Concomitant]
     Active Substance: PANTOPRAZOLE SODIUM
     Indication: GASTRITIS
     Dosage: 40 MILLIGRAM, QD
     Route: 048
     Dates: start: 20191024, end: 20191025
  41. DEXAMETHASONE. [Concomitant]
     Active Substance: DEXAMETHASONE
     Dosage: 5 MILLIGRAM, Q3W
     Route: 042
     Dates: start: 20190613
  42. DIFLUNISAL. [Concomitant]
     Active Substance: DIFLUNISAL
     Indication: AMYLOIDOSIS
     Dosage: 250 MILLIGRAM, BID
     Route: 048
     Dates: start: 20131022
  43. ENCORAFENIB [Concomitant]
     Active Substance: ENCORAFENIB
     Dosage: 225 MILLIGRAM, QD
     Route: 048
     Dates: start: 20190926
  44. MULTIVITAMIN [Concomitant]
     Active Substance: VITAMINS
     Indication: SUPPLEMENTATION THERAPY
     Dosage: 1 DOSAGE FORM, QD
     Route: 048
     Dates: start: 20111221
  45. OMEGA-3 FATTY ACIDS [Concomitant]
     Active Substance: OMEGA-3 FATTY ACIDS
     Indication: SUPPLEMENTATION THERAPY
     Dosage: 1200 MILLIGRAM, QD
     Route: 048
     Dates: start: 20140115
  46. TAPENTADOL HYDROCHLORIDE [Concomitant]
     Active Substance: TAPENTADOL HYDROCHLORIDE
     Indication: NEURALGIA
     Dosage: 50 MILLIGRAM, QD
     Route: 048
     Dates: start: 20140224
  47. ASPIRIN BUFFERED [Concomitant]
     Active Substance: ASPIRIN
     Indication: CEREBROVASCULAR ACCIDENT
     Dosage: 300 MILLIGRAM, QD
     Route: 054
     Dates: start: 20191010, end: 20191010
  48. PROSCAR [Concomitant]
     Active Substance: FINASTERIDE
     Indication: BENIGN PROSTATIC HYPERPLASIA
     Dosage: 5 MILLIGRAM, QD
     Route: 048
     Dates: start: 20190928
  49. NEXIUM [Concomitant]
     Active Substance: ESOMEPRAZOLE MAGNESIUM
     Indication: VOMITING
  50. FLUCONAZOLE. [Concomitant]
     Active Substance: FLUCONAZOLE
     Indication: INFECTION
     Dosage: 800 MILLIGRAM, QD
     Route: 048
     Dates: start: 20191022, end: 20191023

REACTIONS (3)
  - Malignant melanoma [Not Recovered/Not Resolved]
  - Metastases to central nervous system [Not Recovered/Not Resolved]
  - Confusional state [Not Recovered/Not Resolved]

NARRATIVE: CASE EVENT DATE: 20190926
